FAERS Safety Report 18396666 (Version 4)
Quarter: 2021Q2

REPORT INFORMATION
  Report Type: Report from Study
  Country: None (occurrence: CO)
  Receive Date: 20201019
  Receipt Date: 20210603
  Transmission Date: 20210717
  Serious: Yes (Hospitalization, Other)
  Sender: FDA-Public Use
  Company Number: CO-ABBVIE-20K-036-3614117-00

PATIENT
  Age: 37 Year
  Sex: Female
  Weight: 68 kg

DRUGS (4)
  1. HUMIRA [Suspect]
     Active Substance: ADALIMUMAB
     Route: 058
  2. HUMIRA [Suspect]
     Active Substance: ADALIMUMAB
     Indication: RHEUMATOID ARTHRITIS
     Route: 058
  3. HUMIRA [Suspect]
     Active Substance: ADALIMUMAB
     Indication: RHEUMATOID ARTHRITIS
     Route: 058
     Dates: start: 20141002
  4. LEVETIRACETAM. [Concomitant]
     Active Substance: LEVETIRACETAM
     Indication: SEIZURE
     Route: 048
     Dates: start: 2018

REACTIONS (17)
  - Epilepsy [Not Recovered/Not Resolved]
  - Skin disorder [Recovering/Resolving]
  - Liver disorder [Recovering/Resolving]
  - Sleep disorder [Recovering/Resolving]
  - Hypothyroidism [Recovered/Resolved]
  - Insomnia [Recovering/Resolving]
  - Facial pain [Recovering/Resolving]
  - Photophobia [Not Recovered/Not Resolved]
  - Hypersensitivity [Recovering/Resolving]
  - Seizure [Recovering/Resolving]
  - Head injury [Unknown]
  - Nervous system disorder [Not Recovered/Not Resolved]
  - Inflammation [Not Recovered/Not Resolved]
  - Arthritis [Not Recovered/Not Resolved]
  - Arthralgia [Recovering/Resolving]
  - Overweight [Not Recovered/Not Resolved]
  - Hypothyroidism [Recovering/Resolving]

NARRATIVE: CASE EVENT DATE: 2018
